FAERS Safety Report 23523640 (Version 1)
Quarter: 2024Q1

REPORT INFORMATION
  Report Type: Spontaneous
  Country: US (occurrence: None)
  Receive Date: 20240214
  Receipt Date: 20240214
  Transmission Date: 20240410
  Serious: Yes (Death)
  Sender: FDA-Public Use
  Company Number: None

PATIENT
  Age: 25 Year
  Sex: Female

DRUGS (2)
  1. REVATIO [Suspect]
     Active Substance: SILDENAFIL CITRATE
     Indication: Pulmonary arterial hypertension
     Dosage: 20MG 3 TIMES DAILY BY MOUTH?
     Route: 048
     Dates: start: 202303
  2. OPSUMIT [Concomitant]
     Active Substance: MACITENTAN

REACTIONS (1)
  - Death [None]

NARRATIVE: CASE EVENT DATE: 20240204
